FAERS Safety Report 7254618-1 (Version None)
Quarter: 2011Q1

REPORT INFORMATION
  Report Type: 
  Country: None (occurrence: None)
  Receive Date: 20110129
  Receipt Date: 20100319
  Transmission Date: 20110831
  Serious: No
  Sender: FDA-Public Use
  Company Number: US-ABBOTT-10P-163-0628383-00

PATIENT
  Sex: Male
  Weight: 95.34 kg

DRUGS (5)
  1. HUMIRA [Suspect]
     Indication: CROHN'S DISEASE
     Dosage: ONE LOADING DOSE
     Dates: start: 20100222, end: 20100222
  2. ASACOL [Suspect]
     Indication: CROHN'S DISEASE
     Route: 048
  3. HUMIRA [Suspect]
     Indication: PSORIASIS
  4. HUMIRA [Suspect]
     Indication: RHEUMATOID ARTHRITIS
  5. CALTRATE PLUS-D [Concomitant]
     Indication: PRODUCT USED FOR UNKNOWN INDICATION
     Route: 048

REACTIONS (4)
  - NAUSEA [None]
  - INJECTION SITE PAIN [None]
  - VOMITING [None]
  - INJECTION SITE ERYTHEMA [None]
